FAERS Safety Report 8784615 (Version 1)
Quarter: 2012Q4

REPORT INFORMATION
  Report Type: Spontaneous
  Country: US (occurrence: None)
  Receive Date: 20120831
  Receipt Date: 20120831
  Transmission Date: 20130627
  Serious: Yes (Hospitalization)
  Sender: FDA-Public Use
  Company Number: ALK-2012-000846

PATIENT
  Age: 47 Year
  Sex: Female
  Weight: 49.9 kg

DRUGS (2)
  1. VIVITROL [Suspect]
     Indication: OPIOID TYPE DEPENDENCE
     Route: 030
     Dates: start: 201204
  2. PHENERGAN (PROMETHAZINE) [Concomitant]

REACTIONS (10)
  - Road traffic accident [None]
  - Multiple fractures [None]
  - Fall [None]
  - Pain [None]
  - Limb injury [None]
  - Hip fracture [None]
  - Foot fracture [None]
  - Femur fracture [None]
  - Rib fracture [None]
  - Cervical vertebral fracture [None]
